FAERS Safety Report 7999227-1 (Version None)
Quarter: 2011Q4

REPORT INFORMATION
  Report Type: 
  Country: None (occurrence: None)
  Receive Date: 20111221
  Receipt Date: 20111219
  Transmission Date: 20120403
  Serious: Yes (Hospitalization, Congenital Anomaly, Other)
  Sender: FDA-Public Use
  Company Number: US-PFIZER INC-2010109648

PATIENT
  Sex: Male
  Weight: 3.68 kg

DRUGS (5)
  1. ZOLOFT [Suspect]
     Dosage: UNK
     Route: 064
  2. ACETAMINOPHEN [Concomitant]
     Indication: INFLUENZA LIKE ILLNESS
     Dosage: AS NEEDED
     Route: 064
     Dates: start: 20060406
  3. MULTI-VITAMINS [Concomitant]
     Dosage: UNK
     Route: 064
     Dates: start: 20050901
  4. AMOXICILLIN [Concomitant]
     Indication: NASOPHARYNGITIS
     Dosage: UNK
     Route: 064
     Dates: start: 20060120
  5. GUAIFENESIN [Concomitant]
     Indication: NASOPHARYNGITIS
     Dosage: UNK
     Route: 064
     Dates: start: 20060120

REACTIONS (18)
  - FOETAL EXPOSURE DURING PREGNANCY [None]
  - DEVELOPMENTAL DELAY [None]
  - SUPRAVENTRICULAR TACHYCARDIA [None]
  - PATENT DUCTUS ARTERIOSUS [None]
  - MITRAL VALVE DISEASE [None]
  - CONGENITAL CORONARY ARTERY MALFORMATION [None]
  - TRICUSPID VALVE INCOMPETENCE [None]
  - AORTIC VALVE SCLEROSIS [None]
  - SHONE COMPLEX [None]
  - AORTIC VALVE INCOMPETENCE [None]
  - ATRIAL SEPTAL DEFECT [None]
  - NEONATAL RESPIRATORY DISTRESS SYNDROME [None]
  - VENTRICULAR SEPTAL DEFECT [None]
  - BACTERIAL TRACHEITIS [None]
  - AORTA HYPOPLASIA [None]
  - LEFT VENTRICULAR FAILURE [None]
  - RENAL FAILURE [None]
  - COARCTATION OF THE AORTA [None]
